FAERS Safety Report 4337591-5 (Version None)
Quarter: 2004Q2

REPORT INFORMATION
  Report Type: 
  Country: None (occurrence: None)
  Receive Date: 20040413
  Receipt Date: 20030616
  Transmission Date: 20050107
  Serious: No
  Sender: FDA-Public Use
  Company Number: US-GLAXOSMITHKLINE-A0412807A

PATIENT
  Age: 46 Year
  Sex: Female

DRUGS (4)
  1. DEXEDRINE [Suspect]
     Indication: NARCOLEPSY
     Dosage: 15MG UNKNOWN
     Route: 048
     Dates: start: 20010101
  2. PREMPRO [Concomitant]
  3. AVANDIA [Concomitant]
  4. GLUCOPHAGE [Concomitant]

REACTIONS (1)
  - DRUG INEFFECTIVE [None]
